FAERS Safety Report 8600347 (Version 2)
Quarter: 2013Q3

REPORT INFORMATION
  Report Type: Spontaneous
  Country: US (occurrence: US)
  Receive Date: 20120606
  Receipt Date: 20130722
  Transmission Date: 20140515
  Serious: Yes (Disabling, Other)
  Sender: FDA-Public Use
  Company Number: US-ASTRAZENECA-2012SE35591

PATIENT
  Sex: Female

DRUGS (11)
  1. NEXIUM [Suspect]
     Indication: GASTROOESOPHAGEAL REFLUX DISEASE
     Route: 048
  2. NEXIUM [Suspect]
     Indication: GASTROOESOPHAGEAL REFLUX DISEASE
     Route: 048
  3. ZANTAC [Concomitant]
  4. PREVACID [Concomitant]
  5. TUMS [Concomitant]
     Dosage: AS NEEDED
  6. THYROID PILL [Concomitant]
  7. BLOOD PRESSURE PILL [Concomitant]
  8. PAIN PILL [Concomitant]
  9. FLUID PILL [Concomitant]
  10. POTASSIUM PILL [Concomitant]
  11. RANITIDINE [Concomitant]
     Indication: GASTRIC DISORDER

REACTIONS (19)
  - Neoplasm malignant [Unknown]
  - Back injury [Unknown]
  - Limb injury [Unknown]
  - Fall [Unknown]
  - Osteoporosis [Unknown]
  - Bone density decreased [Unknown]
  - Wrist fracture [Unknown]
  - Multiple fractures [Unknown]
  - Foot fracture [Unknown]
  - Ankle fracture [Unknown]
  - Bone pain [Unknown]
  - Cataract [Unknown]
  - Arthritis [Unknown]
  - Chronic obstructive pulmonary disease [Unknown]
  - Peripheral vascular disorder [Unknown]
  - Angiopathy [Unknown]
  - Stress [Unknown]
  - Hand fracture [Unknown]
  - Depression [Unknown]
